FAERS Safety Report 8051561-5 (Version None)
Quarter: 2012Q1

REPORT INFORMATION
  Report Type: 
  Country: None (occurrence: None)
  Receive Date: 20120117
  Receipt Date: 20120104
  Transmission Date: 20120608
  Serious: Yes (Death)
  Sender: FDA-Public Use
  Company Number: PL-MYLANLABS-2012S1000296

PATIENT
  Age: 49 Year
  Sex: Male

DRUGS (6)
  1. DICLOFENAC [Suspect]
     Indication: COMPLETED SUICIDE
     Dosage: UNKNOWN DOSE
     Route: 065
  2. COLCHICINE [Suspect]
     Indication: COMPLETED SUICIDE
     Dosage: 80-90 TABLETS OF COLCHICINE 0.5MG
  3. DILTIAZEM HCL [Suspect]
     Indication: COMPLETED SUICIDE
     Dosage: UNKNOWN DOSE
     Route: 065
  4. INDAPAMIDE [Suspect]
     Indication: COMPLETED SUICIDE
     Dosage: UNKNOWN DOSE
     Route: 065
  5. ENALAPRIL MALEATE [Suspect]
     Indication: COMPLETED SUICIDE
     Dosage: UNKNOWN DOSE
     Route: 065
  6. KETOPROFEN [Suspect]
     Indication: COMPLETED SUICIDE
     Dosage: UNKNOWN DOSE
     Route: 065

REACTIONS (11)
  - DIARRHOEA [None]
  - DISSEMINATED INTRAVASCULAR COAGULATION [None]
  - MULTI-ORGAN FAILURE [None]
  - COMPLETED SUICIDE [None]
  - CARDIAC ARREST [None]
  - LEUKOCYTOSIS [None]
  - VOMITING [None]
  - NAUSEA [None]
  - ACUTE RESPIRATORY DISTRESS SYNDROME [None]
  - SHOCK [None]
  - POISONING DELIBERATE [None]
